FAERS Safety Report 7218288-0 (Version None)
Quarter: 2011Q1

REPORT INFORMATION
  Report Type: 
  Country: None (occurrence: None)
  Receive Date: 20110110
  Receipt Date: 20110106
  Transmission Date: 20110831
  Serious: Yes (Hospitalization)
  Sender: FDA-Public Use
  Company Number: US-ABBOTT-10P-163-0679039-00

PATIENT
  Sex: Female
  Weight: 50.848 kg

DRUGS (12)
  1. KLONOPIN [Concomitant]
     Indication: DEPRESSION
  2. TRAZODONE [Concomitant]
     Indication: INSOMNIA
     Dosage: EVERY NIGHT
  3. FOLIC ACID [Concomitant]
     Indication: PRODUCT USED FOR UNKNOWN INDICATION
  4. LANTUS [Concomitant]
     Indication: DIABETES MELLITUS
     Dosage: EVERY NIGHT
  5. ZANTAC [Concomitant]
     Indication: GASTROOESOPHAGEAL REFLUX DISEASE
  6. ANTIVERT [Concomitant]
     Indication: DIZZINESS
  7. LIPITOR [Concomitant]
     Indication: CARDIAC DISORDER
  8. PLAVIX [Concomitant]
     Indication: CARDIAC DISORDER
  9. HUMIRA [Suspect]
     Indication: RHEUMATOID ARTHRITIS
     Dates: start: 20100801, end: 20100927
  10. LORTAB [Concomitant]
     Indication: PAIN
  11. NEURONTIN [Concomitant]
     Indication: RESTLESS LEGS SYNDROME
  12. METHOTREXATE [Concomitant]
     Indication: PRODUCT USED FOR UNKNOWN INDICATION

REACTIONS (5)
  - JOINT INJURY [None]
  - INJECTION SITE PAIN [None]
  - FALL [None]
  - CORONARY ARTERY OCCLUSION [None]
  - OPEN WOUND [None]
